FAERS Safety Report 9759568 (Version 2)
Quarter: 2015Q3

REPORT INFORMATION
  Report Type: Spontaneous
  Country: US (occurrence: US)
  Receive Date: 20131216
  Receipt Date: 20150806
  Transmission Date: 20151125
  Serious: No
  Sender: FDA-Public Use
  Company Number: US-GILEAD-2010-0028235

PATIENT
  Age: 54 Year
  Sex: Female

DRUGS (14)
  1. WARFARIN [Concomitant]
     Active Substance: WARFARIN
  2. DIGOXIN. [Concomitant]
     Active Substance: DIGOXIN
  3. PLAVIX [Concomitant]
     Active Substance: CLOPIDOGREL BISULFATE
  4. LANTUS [Concomitant]
     Active Substance: INSULIN GLARGINE
  5. LETAIRIS [Suspect]
     Active Substance: AMBRISENTAN
     Indication: PULMONARY ARTERIAL HYPERTENSION
     Route: 048
     Dates: start: 20100221, end: 20100303
  6. BUMETANIDE. [Concomitant]
     Active Substance: BUMETANIDE
  7. ENALAPRIL [Concomitant]
     Active Substance: ENALAPRIL
  8. SPIRONOLACTONE. [Concomitant]
     Active Substance: SPIRONOLACTONE
  9. NITROGLYCERIN. [Concomitant]
     Active Substance: NITROGLYCERIN
  10. LIPITOR [Concomitant]
     Active Substance: ATORVASTATIN CALCIUM
  11. PROVENTIL [Concomitant]
     Active Substance: ALBUTEROL
  12. HUMALOG [Concomitant]
     Active Substance: INSULIN LISPRO
  13. FLOVENT [Concomitant]
     Active Substance: FLUTICASONE PROPIONATE
  14. COREG [Concomitant]
     Active Substance: CARVEDILOL

REACTIONS (1)
  - Oedema peripheral [Recovered/Resolved]
